FAERS Safety Report 23103912 (Version 1)
Quarter: 2023Q4

REPORT INFORMATION
  Report Type: Spontaneous
  Country: US (occurrence: US)
  Receive Date: 20231025
  Receipt Date: 20231025
  Transmission Date: 20240110
  Serious: No
  Sender: FDA-Public Use
  Company Number: US-KARYOPHARM-2023KPT001759

PATIENT

DRUGS (18)
  1. XPOVIO [Suspect]
     Active Substance: SELINEXOR
     Indication: Plasma cell myeloma
     Dosage: 40 MG, WEEKLY
     Route: 048
     Dates: start: 20230816, end: 202308
  2. POMALYST [Concomitant]
     Active Substance: POMALIDOMIDE
  3. APREPITANT [Concomitant]
     Active Substance: APREPITANT
  4. OLANZAPINE [Concomitant]
     Active Substance: OLANZAPINE
  5. DARZALEX [Concomitant]
     Active Substance: DARATUMUMAB
  6. ALLOPURINOL [Concomitant]
     Active Substance: ALLOPURINOL
  7. DAPSONE [Concomitant]
     Active Substance: DAPSONE
  8. ACYCLOVIR SODIUM [Concomitant]
     Active Substance: ACYCLOVIR SODIUM
  9. ALBUTEROL SULFATE [Concomitant]
     Active Substance: ALBUTEROL SULFATE
  10. LEVALBUTEROL HYDROCHLORIDE [Concomitant]
     Active Substance: LEVALBUTEROL HYDROCHLORIDE
  11. LOSARTAN [Concomitant]
     Active Substance: LOSARTAN
  12. ELIQUIS [Concomitant]
     Active Substance: APIXABAN
  13. LEVOFLOXACIN [Concomitant]
     Active Substance: LEVOFLOXACIN
  14. LORAZEPAM [Concomitant]
     Active Substance: LORAZEPAM
  15. PROCHLORPERAZINE [Concomitant]
     Active Substance: PROCHLORPERAZINE
  16. ONDANSETRON [Concomitant]
     Active Substance: ONDANSETRON
  17. DEXAMETHASONE [Concomitant]
     Active Substance: DEXAMETHASONE
  18. FLOVENT [Concomitant]
     Active Substance: FLUTICASONE PROPIONATE
     Dosage: UNK

REACTIONS (3)
  - Visual impairment [Unknown]
  - Fatigue [Unknown]
  - Nausea [Unknown]

NARRATIVE: CASE EVENT DATE: 20230801
